FAERS Safety Report 8134513-6 (Version None)
Quarter: 2012Q1

REPORT INFORMATION
  Report Type: 
  Country: None (occurrence: None)
  Receive Date: 20120214
  Receipt Date: 20120208
  Transmission Date: 20120608
  Serious: Yes (Other)
  Sender: FDA-Public Use
  Company Number: BR-BAYER-2011-104484

PATIENT
  Age: 43 Year
  Sex: Female

DRUGS (1)
  1. MIRENA [Suspect]
     Indication: UTERINE LEIOMYOMA
     Dosage: 20 MCG/24HR, CONT
     Route: 015
     Dates: start: 20101206, end: 20110801

REACTIONS (5)
  - AXILLARY MASS [None]
  - BREAST CANCER METASTATIC [None]
  - MIGRAINE [None]
  - BREAST CANCER [None]
  - METRORRHAGIA [None]
